FAERS Safety Report 7054562-9 (Version None)
Quarter: 2010Q4

REPORT INFORMATION
  Report Type: 
  Country: None (occurrence: None)
  Receive Date: 20101020
  Receipt Date: 20101007
  Transmission Date: 20110411
  Serious: Yes (Hospitalization, Other)
  Sender: FDA-Public Use
  Company Number: US-ELI_LILLY_AND_COMPANY-US201010001837

PATIENT
  Age: 67 Year
  Sex: Male
  Weight: 134 kg

DRUGS (10)
  1. DULOXETINE HYDROCHLORIDE [Suspect]
     Dosage: UNK, UNK
  2. METHYLENE BLUE [Concomitant]
     Indication: PARATHYROIDECTOMY
     Dosage: 1000 MG, OTHER
     Route: 042
  3. SIMVASTATIN [Concomitant]
  4. ALLOPURINOL [Concomitant]
  5. METFORMIN [Concomitant]
  6. AMLODIPINE [Concomitant]
  7. BENAZEPRIL HYDROCHLORIDE [Concomitant]
  8. ANESTHETICS, GENERAL [Concomitant]
     Indication: SURGERY
  9. HYPNOTICS AND SEDATIVES [Concomitant]
  10. OXYGEN [Concomitant]
     Dosage: 2 LITER, UNK
     Route: 055

REACTIONS (5)
  - DRUG INTERACTION [None]
  - ENCEPHALOPATHY [None]
  - RESPIRATORY ACIDOSIS [None]
  - SEROTONIN SYNDROME [None]
  - URINE COLOUR ABNORMAL [None]
